FAERS Safety Report 21739280 (Version 1)
Quarter: 2022Q4

REPORT INFORMATION
  Report Type: Spontaneous
  Country: US (occurrence: None)
  Receive Date: 20221215
  Receipt Date: 20221215
  Transmission Date: 20230113
  Serious: Yes (Hospitalization)
  Sender: FDA-Public Use
  Company Number: None

PATIENT
  Age: 83 Year
  Sex: Male
  Weight: 94.35 kg

DRUGS (1)
  1. REMDESIVIR [Suspect]
     Active Substance: REMDESIVIR
     Indication: COVID-19
     Dates: start: 20221115, end: 20221116

REACTIONS (4)
  - Peripheral swelling [None]
  - Hepatic enzyme increased [None]
  - Hypoglycaemia [None]
  - Hypokalaemia [None]

NARRATIVE: CASE EVENT DATE: 20221116
